FAERS Safety Report 17148164 (Version 1)
Quarter: 2019Q4

REPORT INFORMATION
  Report Type: Spontaneous
  Country: US (occurrence: US)
  Receive Date: 20191212
  Receipt Date: 20191212
  Transmission Date: 20200122
  Serious: No
  Sender: FDA-Public Use
  Company Number: NVSC2019US020739

PATIENT
  Sex: Female

DRUGS (2)
  1. COSENTYX [Suspect]
     Active Substance: SECUKINUMAB
     Indication: OROPHARYNGEAL PAIN
  2. COSENTYX [Suspect]
     Active Substance: SECUKINUMAB
     Indication: LARYNGITIS
     Dosage: 300 MG
     Route: 058
     Dates: start: 20181001

REACTIONS (3)
  - Product use in unapproved indication [Unknown]
  - Laryngeal disorder [Recovered/Resolved]
  - Oropharyngeal pain [Recovered/Resolved]

NARRATIVE: CASE EVENT DATE: 20181014
